FAERS Safety Report 8455126 (Version 2)
Quarter: 2013Q2

REPORT INFORMATION
  Report Type: Spontaneous
  Country: BR (occurrence: BR)
  Receive Date: 20120313
  Receipt Date: 20130527
  Transmission Date: 20140414
  Serious: Yes (Other)
  Sender: FDA-Public Use
  Company Number: BR-AMGEN-BRASP2012014112

PATIENT
  Age: 40 Year
  Sex: Female
  Weight: 90 kg

DRUGS (6)
  1. ENBREL [Suspect]
     Indication: RHEUMATOID ARTHRITIS
     Dosage: 25 MG, UNK
     Route: 058
     Dates: start: 201010
  2. ENBREL [Suspect]
     Dosage: 25 MG, UNSPECIFIED FREQUENCY
     Route: 058
     Dates: start: 201102, end: 201109
  3. ENBREL [Suspect]
     Dosage: 50 MG, WEEKLY
     Route: 058
     Dates: start: 2011
  4. CORTICORTEN [Concomitant]
     Dosage: 20 MG, 1X/DAY (ONE TABET DAILY)
  5. DICLOFENAC [Concomitant]
     Dosage: UNK
  6. PARACETAMOL/CODEINA KERN PHARMA [Concomitant]
     Dosage: WHEN FEELING PAIN

REACTIONS (5)
  - Obesity [Unknown]
  - Arthralgia [Unknown]
  - Drug ineffective [Unknown]
  - Injection site erythema [Unknown]
  - Injection site pain [Unknown]
